FAERS Safety Report 16999441 (Version 3)
Quarter: 2019Q4

REPORT INFORMATION
  Report Type: Report from Study
  Country: CO (occurrence: CO)
  Receive Date: 20191105
  Receipt Date: 20191206
  Transmission Date: 20200122
  Serious: Yes (Life-Threatening, Other)
  Sender: FDA-Public Use
  Company Number: PHHY2019CO173943

PATIENT
  Sex: Female
  Weight: 63 kg

DRUGS (2)
  1. KISQALI [Suspect]
     Active Substance: RIBOCICLIB
     Indication: BREAST CANCER METASTATIC
     Dosage: 600 MG, QD
     Route: 048
     Dates: start: 20181216, end: 201911
  2. FEMARA [Suspect]
     Active Substance: LETROZOLE
     Indication: BREAST CANCER
     Dosage: 2.5 MG, QD
     Route: 048

REACTIONS (12)
  - Injury [Unknown]
  - Metastases to lung [Unknown]
  - Influenza [Recovering/Resolving]
  - Pneumonia [Unknown]
  - Cough [Unknown]
  - Back pain [Unknown]
  - General physical condition abnormal [Unknown]
  - White blood cell count decreased [Unknown]
  - Apparent death [Unknown]
  - Decreased immune responsiveness [Unknown]
  - Neutrophil count decreased [Unknown]
  - Drug ineffective [Unknown]
